FAERS Safety Report 18888729 (Version 5)
Quarter: 2022Q3

REPORT INFORMATION
  Report Type: Other
  Country: GB (occurrence: None)
  Receive Date: 20210213
  Receipt Date: 20220818
  Transmission Date: 20221026
  Serious: Yes (Death, Hospitalization)
  Sender: FDA-Public Use
  Company Number: GB-ROCHE-2767537

PATIENT
  Sex: Female

DRUGS (2)
  1. TOCILIZUMAB [Suspect]
     Active Substance: TOCILIZUMAB
     Indication: Giant cell arteritis
     Dosage: 162MG/0.9ML TO BE INJECTED ONCE PER WEEK
     Route: 058
     Dates: start: 20201217
  2. TOCILIZUMAB [Suspect]
     Active Substance: TOCILIZUMAB
     Indication: Rheumatoid arthritis

REACTIONS (2)
  - Fall [Unknown]
  - Death [Fatal]
